FAERS Safety Report 20148958 (Version 10)
Quarter: 2025Q2

REPORT INFORMATION
  Report Type: Spontaneous
  Country: PL (occurrence: PL)
  Receive Date: 20211204
  Receipt Date: 20250609
  Transmission Date: 20250716
  Serious: Yes (Other)
  Sender: NOVARTIS
  Company Number: PL-NOVARTISPH-NVSC2021PL271842

PATIENT
  Age: 88 Year
  Sex: Male

DRUGS (146)
  1. RAMIPRIL [Suspect]
     Active Substance: RAMIPRIL
     Indication: Product used for unknown indication
     Dosage: 2.5 MG, BID (IN THE MORNING AND EVENING)
     Route: 065
  2. RAMIPRIL [Suspect]
     Active Substance: RAMIPRIL
     Dosage: 2.5 MG, QD
     Route: 065
  3. RAMIPRIL [Suspect]
     Active Substance: RAMIPRIL
     Dosage: 5 MG, QD
     Route: 065
  4. RAMIPRIL [Suspect]
     Active Substance: RAMIPRIL
     Dosage: 5 MG, QD
     Route: 065
  5. RAMIPRIL [Suspect]
     Active Substance: RAMIPRIL
     Dosage: 2.5 MG, BID (BID IN THE MORNING AND EVENING)
     Route: 065
  6. RAMIPRIL [Suspect]
     Active Substance: RAMIPRIL
     Route: 065
  7. RAMIPRIL [Suspect]
     Active Substance: RAMIPRIL
     Dosage: 2.5 MG, QD (IN THE MORNING AND EVENING)
     Route: 065
  8. RAMIPRIL [Suspect]
     Active Substance: RAMIPRIL
     Dosage: 2.5 MG, Q12H
     Route: 065
  9. RAMIPRIL [Suspect]
     Active Substance: RAMIPRIL
     Dosage: 5 MG, QD
     Route: 065
  10. RAMIPRIL [Suspect]
     Active Substance: RAMIPRIL
     Route: 065
  11. RAMIPRIL [Suspect]
     Active Substance: RAMIPRIL
     Dosage: 2.5 MG, QD
     Route: 065
  12. ATORVASTATIN [Suspect]
     Active Substance: ATORVASTATIN
     Indication: Product used for unknown indication
     Dosage: 40 MG, QD
     Route: 065
     Dates: start: 201810
  13. ATORVASTATIN [Suspect]
     Active Substance: ATORVASTATIN
     Dosage: 40 MG, QD
     Route: 065
     Dates: start: 201910
  14. ATORVASTATIN [Suspect]
     Active Substance: ATORVASTATIN
     Route: 065
  15. ATORVASTATIN [Suspect]
     Active Substance: ATORVASTATIN
     Dosage: 40 MG, QD
     Route: 065
     Dates: start: 201810
  16. ATORVASTATIN [Suspect]
     Active Substance: ATORVASTATIN
     Dosage: 40 MG, QD
     Route: 065
     Dates: start: 20211112
  17. ATORVASTATIN [Suspect]
     Active Substance: ATORVASTATIN
     Dosage: 40 MG, QD
     Route: 065
  18. ROSUVASTATIN CALCIUM [Suspect]
     Active Substance: ROSUVASTATIN CALCIUM
     Indication: Product used for unknown indication
     Dosage: 10 MG, Q12H
     Route: 065
     Dates: start: 201909
  19. ROSUVASTATIN CALCIUM [Suspect]
     Active Substance: ROSUVASTATIN CALCIUM
     Route: 065
     Dates: start: 201910
  20. ROSUVASTATIN CALCIUM [Suspect]
     Active Substance: ROSUVASTATIN CALCIUM
     Dosage: 10 MG, QD
     Route: 065
     Dates: start: 202109
  21. ROSUVASTATIN CALCIUM [Suspect]
     Active Substance: ROSUVASTATIN CALCIUM
     Dosage: 20 MG, Q8H
     Route: 065
     Dates: start: 20211112
  22. SACUBITRIL\VALSARTAN [Suspect]
     Active Substance: SACUBITRIL\VALSARTAN
     Indication: Product used for unknown indication
     Dosage: 1 DOSAGE FORM, QD (24/26 MG)
     Route: 065
     Dates: start: 201810
  23. SACUBITRIL\VALSARTAN [Suspect]
     Active Substance: SACUBITRIL\VALSARTAN
     Dosage: 2 DOSAGE FORM, BID (49/51 MG )
     Route: 065
     Dates: start: 201911
  24. SACUBITRIL\VALSARTAN [Suspect]
     Active Substance: SACUBITRIL\VALSARTAN
     Route: 065
     Dates: start: 202109
  25. SACUBITRIL\VALSARTAN [Suspect]
     Active Substance: SACUBITRIL\VALSARTAN
     Dosage: UNK, BID (24/26 MG)
     Route: 065
     Dates: start: 20211112
  26. SACUBITRIL\VALSARTAN [Suspect]
     Active Substance: SACUBITRIL\VALSARTAN
     Dosage: 1 DOSAGE FORM, BID (24/26 MG) BID/1 DF, QD
     Route: 065
     Dates: start: 20211112
  27. SACUBITRIL\VALSARTAN [Suspect]
     Active Substance: SACUBITRIL\VALSARTAN
     Dosage: 1 DOSAGE FORM, QD (24/26 MG)
     Route: 065
     Dates: start: 202109
  28. SACUBITRIL\VALSARTAN [Suspect]
     Active Substance: SACUBITRIL\VALSARTAN
     Route: 065
  29. ROSUVASTATIN [Suspect]
     Active Substance: ROSUVASTATIN
     Indication: Product used for unknown indication
     Dosage: 10 MG, QD
     Route: 065
     Dates: start: 201910
  30. ROSUVASTATIN [Suspect]
     Active Substance: ROSUVASTATIN
     Route: 065
     Dates: start: 20211112
  31. ROSUVASTATIN [Suspect]
     Active Substance: ROSUVASTATIN
     Dosage: 10 MG, QD
     Route: 065
     Dates: start: 202109
  32. ROSUVASTATIN [Suspect]
     Active Substance: ROSUVASTATIN
     Dosage: 20 MG, QD
     Route: 065
     Dates: start: 20211112
  33. ROSUVASTATIN [Suspect]
     Active Substance: ROSUVASTATIN
     Dosage: 10 MG, QD (START DATE: SEP-2021)
     Route: 065
     Dates: start: 201910
  34. ROSUVASTATIN [Suspect]
     Active Substance: ROSUVASTATIN
     Dosage: 20 MG, QD
     Route: 065
     Dates: start: 20211112
  35. ROSUVASTATIN [Suspect]
     Active Substance: ROSUVASTATIN
     Dosage: 20 MG, Q8H (EVERY 8 HRS)
     Route: 065
     Dates: start: 20191112
  36. ATORVASTATIN CALCIUM [Suspect]
     Active Substance: ATORVASTATIN CALCIUM
     Indication: Product used for unknown indication
     Dosage: 40 MG, QD
     Route: 065
     Dates: start: 201810
  37. ATORVASTATIN CALCIUM [Suspect]
     Active Substance: ATORVASTATIN CALCIUM
     Dosage: 40 MG, QD
     Route: 065
     Dates: start: 201910
  38. ATORVASTATIN CALCIUM [Suspect]
     Active Substance: ATORVASTATIN CALCIUM
     Dosage: 40 MG, QD (1/DAY)
     Route: 065
     Dates: start: 20191112
  39. OMEPRAZOLE [Suspect]
     Active Substance: OMEPRAZOLE
     Indication: Product used for unknown indication
     Dosage: 20 MG, QD
     Route: 065
     Dates: start: 201810
  40. OMEPRAZOLE [Suspect]
     Active Substance: OMEPRAZOLE
     Dosage: 20 MG, QD
     Route: 065
     Dates: start: 201910
  41. OMEPRAZOLE [Suspect]
     Active Substance: OMEPRAZOLE
     Dosage: 20 MG, QD
     Route: 065
     Dates: start: 202109
  42. OMEPRAZOLE [Suspect]
     Active Substance: OMEPRAZOLE
     Dosage: 20 MG, QD
     Route: 065
     Dates: start: 20211112
  43. OMEPRAZOLE [Suspect]
     Active Substance: OMEPRAZOLE
     Dosage: 10 MG, QD
     Route: 065
     Dates: start: 202109
  44. OMEPRAZOLE [Suspect]
     Active Substance: OMEPRAZOLE
     Route: 065
     Dates: start: 20211112
  45. APIXABAN [Suspect]
     Active Substance: APIXABAN
     Indication: Cerebrovascular accident prophylaxis
     Dosage: 2.5 MG, BID (TABLET)
     Route: 065
     Dates: start: 201810
  46. APIXABAN [Suspect]
     Active Substance: APIXABAN
     Dosage: 2.5 MG, BID
     Route: 065
     Dates: start: 201910
  47. APIXABAN [Suspect]
     Active Substance: APIXABAN
     Dosage: 2.5 MG, BID
     Route: 065
     Dates: start: 20211112
  48. APIXABAN [Suspect]
     Active Substance: APIXABAN
     Route: 065
  49. APIXABAN [Suspect]
     Active Substance: APIXABAN
     Route: 065
  50. APIXABAN [Suspect]
     Active Substance: APIXABAN
     Route: 065
     Dates: start: 20211112
  51. APIXABAN [Suspect]
     Active Substance: APIXABAN
     Dosage: 2.5 MG, Q12H (5 MG, QD)
     Route: 065
     Dates: start: 20191112
  52. APIXABAN [Suspect]
     Active Substance: APIXABAN
     Dosage: 2.5 MG, Q12H
     Route: 065
     Dates: start: 20211112
  53. APIXABAN [Suspect]
     Active Substance: APIXABAN
     Dosage: 5 MG, Q12H
     Route: 065
  54. APIXABAN [Suspect]
     Active Substance: APIXABAN
     Dosage: 5 MG, Q12H
     Route: 065
     Dates: start: 20211112
  55. PANTOPRAZOLE [Suspect]
     Active Substance: PANTOPRAZOLE
     Indication: Product used for unknown indication
     Dosage: 20 MG, QD
     Route: 065
     Dates: start: 201910
  56. PANTOPRAZOLE [Suspect]
     Active Substance: PANTOPRAZOLE
     Dosage: 20 MG, QD (1/DAY)
     Route: 065
     Dates: start: 20211112
  57. PANTOPRAZOLE [Suspect]
     Active Substance: PANTOPRAZOLE
     Dosage: 20 MG, QD (1/DAY)
     Route: 065
     Dates: start: 201810
  58. PANTOPRAZOLE [Suspect]
     Active Substance: PANTOPRAZOLE
     Dosage: 10 MG, QD (1/DAY)
     Route: 065
     Dates: start: 201009
  59. PANTOPRAZOLE [Suspect]
     Active Substance: PANTOPRAZOLE
     Dosage: 20 MG, QD (1/DAY)
     Route: 065
     Dates: start: 201009
  60. PANTOPRAZOLE [Suspect]
     Active Substance: PANTOPRAZOLE
     Dosage: 10 MG, QD (1/DAY)
     Route: 065
     Dates: start: 201009
  61. PANTOPRAZOLE [Suspect]
     Active Substance: PANTOPRAZOLE
     Dosage: 20 MG, QD
     Route: 065
     Dates: start: 201009
  62. TORSEMIDE [Suspect]
     Active Substance: TORSEMIDE
     Indication: Product used for unknown indication
     Dosage: 10 MG, QD (10 MG, QD, IN THE MORNING)
     Route: 065
     Dates: start: 201810
  63. TORSEMIDE [Suspect]
     Active Substance: TORSEMIDE
     Dosage: 15 MG, QD (15 MG, 1/DAY)
     Route: 065
     Dates: start: 201810
  64. TORSEMIDE [Suspect]
     Active Substance: TORSEMIDE
     Dosage: 10 MG, QD (10 MG, 1/DAY0)
     Route: 065
     Dates: start: 201910
  65. TORSEMIDE [Suspect]
     Active Substance: TORSEMIDE
     Dosage: 15 MG, QD (15 MG, 1/DAY))
     Route: 065
     Dates: start: 201910
  66. TORSEMIDE [Suspect]
     Active Substance: TORSEMIDE
     Dosage: 20 MG, QD (10 MG, BID)
     Route: 065
     Dates: start: 202109
  67. TORSEMIDE [Suspect]
     Active Substance: TORSEMIDE
     Dosage: 10 MG, BID (10 MG, BID)
     Route: 065
     Dates: start: 20211112
  68. TORSEMIDE [Suspect]
     Active Substance: TORSEMIDE
     Dosage: 10 MG, QD
     Route: 065
  69. TORSEMIDE [Suspect]
     Active Substance: TORSEMIDE
     Dosage: 10 MG, QD
     Route: 065
  70. TORSEMIDE [Suspect]
     Active Substance: TORSEMIDE
     Dosage: 15 MG, QD
     Route: 065
  71. TORSEMIDE [Suspect]
     Active Substance: TORSEMIDE
     Dosage: 10 MG, QD (10 MILLIGRAM, EVERY 12 HRS)
     Route: 065
     Dates: start: 20211112
  72. TORSEMIDE [Suspect]
     Active Substance: TORSEMIDE
     Dosage: 10 MG, Q12H
     Route: 065
  73. TORSEMIDE [Suspect]
     Active Substance: TORSEMIDE
     Dosage: 20 MG, QD
     Route: 065
  74. TORSEMIDE [Suspect]
     Active Substance: TORSEMIDE
     Dosage: 10 MG, QD
     Route: 065
  75. TORSEMIDE [Suspect]
     Active Substance: TORSEMIDE
     Dosage: UNK, QD (1- DAILY)
     Route: 065
  76. TORSEMIDE [Suspect]
     Active Substance: TORSEMIDE
     Dosage: 10 MG, QD
     Route: 065
  77. TORSEMIDE [Suspect]
     Active Substance: TORSEMIDE
     Dosage: 10 MG, QD
     Route: 065
  78. TORSEMIDE [Suspect]
     Active Substance: TORSEMIDE
     Dosage: 40 MG, QD (40 MILLIGRAM DAILY)
     Route: 065
     Dates: start: 20211112
  79. TORSEMIDE [Suspect]
     Active Substance: TORSEMIDE
     Dosage: 15 MG, QD
     Route: 065
  80. TORSEMIDE [Suspect]
     Active Substance: TORSEMIDE
     Dosage: 10 MG, QD (10 MILLIGRAM DAILY)
     Route: 065
  81. TORSEMIDE [Suspect]
     Active Substance: TORSEMIDE
     Dosage: 20 MG, QD (20 MILLIGRAM DAILY)
     Route: 065
  82. TORSEMIDE [Suspect]
     Active Substance: TORSEMIDE
     Dosage: 10 MG, QD (10 MILLIGRAM, Q12H)
     Route: 065
  83. TORSEMIDE [Suspect]
     Active Substance: TORSEMIDE
     Dosage: 40 MG, QD (80 MILLIGRAM DAILY)
     Route: 065
     Dates: start: 201910
  84. EPLERENONE [Suspect]
     Active Substance: EPLERENONE
     Indication: Product used for unknown indication
     Dosage: 25 MG, QD, (25 MILLIGRAM, 1/DAY)
     Route: 065
     Dates: start: 201810
  85. EPLERENONE [Suspect]
     Active Substance: EPLERENONE
     Dosage: 50 MG, QD
     Route: 065
     Dates: start: 201910
  86. EPLERENONE [Suspect]
     Active Substance: EPLERENONE
     Dosage: 50 MG, QD
     Route: 065
     Dates: start: 201910
  87. EPLERENONE [Suspect]
     Active Substance: EPLERENONE
     Dosage: 25 MG, QD (25 MILLIGRAM, 1/DAY)
     Route: 065
     Dates: start: 202109
  88. EPLERENONE [Suspect]
     Active Substance: EPLERENONE
     Dosage: 25 MG, QD
     Route: 065
     Dates: start: 202109
  89. EPLERENONE [Suspect]
     Active Substance: EPLERENONE
     Dosage: 25 MG, QD (25 MILLIGRAM, 1/DAY)
     Route: 065
     Dates: start: 20211112
  90. FUROSEMIDE [Suspect]
     Active Substance: FUROSEMIDE
     Indication: Product used for unknown indication
     Dosage: 50 MG, QD
     Route: 065
  91. FUROSEMIDE [Suspect]
     Active Substance: FUROSEMIDE
     Dosage: 40 MG, Q24H (40 MILLIGRAM DAILY)
     Route: 065
     Dates: start: 201810
  92. FUROSEMIDE [Suspect]
     Active Substance: FUROSEMIDE
     Dosage: 80 MG, QD (IN THE MORNING)
     Route: 065
     Dates: start: 201810
  93. FUROSEMIDE [Suspect]
     Active Substance: FUROSEMIDE
     Dosage: 80 MG, QD (40 MG, BID)
     Route: 065
     Dates: start: 201810
  94. FUROSEMIDE [Suspect]
     Active Substance: FUROSEMIDE
     Dosage: 40 MG, QD
     Route: 065
     Dates: start: 201910
  95. FUROSEMIDE [Suspect]
     Active Substance: FUROSEMIDE
     Dosage: 40 MG, BID
     Route: 065
     Dates: start: 201910
  96. FUROSEMIDE [Suspect]
     Active Substance: FUROSEMIDE
     Dosage: 80 MG, QD (40 MG, BID)
     Route: 065
     Dates: start: 202109
  97. FUROSEMIDE [Suspect]
     Active Substance: FUROSEMIDE
     Dosage: 80 MG, QD (40 MG, BID)
     Route: 065
     Dates: start: 20211112
  98. FUROSEMIDE [Suspect]
     Active Substance: FUROSEMIDE
     Dosage: 80 MG, QD (40 MG, BID)
     Route: 065
     Dates: start: 201910
  99. FUROSEMIDE [Suspect]
     Active Substance: FUROSEMIDE
     Dosage: 160 MG, QD (40 MG, BID)
     Route: 065
     Dates: start: 201810
  100. FUROSEMIDE [Suspect]
     Active Substance: FUROSEMIDE
     Dosage: 160 MG, QD (40 MG, BID)
     Route: 065
     Dates: start: 201910
  101. FUROSEMIDE [Suspect]
     Active Substance: FUROSEMIDE
     Dosage: 40 MG, QD (40 MILLIGRAM, BID)
     Route: 065
  102. FUROSEMIDE [Suspect]
     Active Substance: FUROSEMIDE
     Dosage: 40 MG, QD ( AM (40 MILLIGRAM BID IN THE MORNING ))
     Route: 065
     Dates: start: 20211112
  103. ASPIRIN\CAFFEINE\CODEINE PHOSPHATE\PHENACETIN [Suspect]
     Active Substance: ASPIRIN\CAFFEINE\CODEINE PHOSPHATE\PHENACETIN
     Indication: Product used for unknown indication
     Dosage: 2.5 MG, BID
     Route: 065
     Dates: start: 201810
  104. ASPIRIN\CAFFEINE\CODEINE PHOSPHATE\PHENACETIN [Suspect]
     Active Substance: ASPIRIN\CAFFEINE\CODEINE PHOSPHATE\PHENACETIN
     Dosage: 2.5 MG, Q12H (DAILY)
     Route: 065
     Dates: start: 201810
  105. METOPROLOL TARTRATE [Suspect]
     Active Substance: METOPROLOL TARTRATE
     Indication: Product used for unknown indication
     Route: 065
     Dates: start: 201810
  106. METOPROLOL TARTRATE [Suspect]
     Active Substance: METOPROLOL TARTRATE
     Dosage: 75 MG, QD, IN THE MORNING, AT NOON AND IN THE EVENING
     Route: 065
     Dates: start: 201810
  107. METOPROLOL TARTRATE [Suspect]
     Active Substance: METOPROLOL TARTRATE
     Dosage: 75 MG, QD
     Route: 065
     Dates: start: 201910
  108. METOPROLOL TARTRATE [Suspect]
     Active Substance: METOPROLOL TARTRATE
     Dosage: 200 MG, QD
     Route: 065
     Dates: start: 201911
  109. METOPROLOL TARTRATE [Suspect]
     Active Substance: METOPROLOL TARTRATE
     Dosage: 5 MG, QD
     Route: 065
     Dates: start: 20191112
  110. METOPROLOL TARTRATE [Suspect]
     Active Substance: METOPROLOL TARTRATE
     Dosage: 25 MG, Q8H
     Route: 065
     Dates: start: 201910
  111. METOPROLOL TARTRATE [Suspect]
     Active Substance: METOPROLOL TARTRATE
     Dosage: 100 MG, Q12H
     Route: 065
  112. METOPROLOL TARTRATE [Suspect]
     Active Substance: METOPROLOL TARTRATE
     Route: 065
  113. METOPROLOL TARTRATE [Suspect]
     Active Substance: METOPROLOL TARTRATE
     Dosage: 225 MG, QD
     Route: 065
  114. METOPROLOL TARTRATE [Suspect]
     Active Substance: METOPROLOL TARTRATE
     Dosage: 400 MG, QD
     Route: 065
  115. METOPROLOL TARTRATE [Suspect]
     Active Substance: METOPROLOL TARTRATE
     Route: 065
  116. UNSPECIFIED INGREDIENT [Suspect]
     Active Substance: UNSPECIFIED INGREDIENT
     Indication: Product used for unknown indication
     Route: 065
  117. NYSTATIN [Suspect]
     Active Substance: NYSTATIN
     Indication: Product used for unknown indication
     Route: 065
  118. ASPIRIN [Suspect]
     Active Substance: ASPIRIN
     Indication: Product used for unknown indication
     Dosage: 2.5 MG, BID
     Route: 065
     Dates: start: 201810
  119. ASPIRIN [Suspect]
     Active Substance: ASPIRIN
     Dosage: 10 MG, QD
     Route: 065
  120. ASPIRIN [Suspect]
     Active Substance: ASPIRIN
     Indication: Product used for unknown indication
     Dosage: 2.5 MG, BID (5 MILLIGRAM, QD (2.5 MG, BID))
     Route: 065
     Dates: start: 201810
  121. ASPIRIN [Suspect]
     Active Substance: ASPIRIN
     Dosage: 5 MG, QD (2.5 MG BID)
     Route: 065
     Dates: start: 201810
  122. ASPIRIN [Suspect]
     Active Substance: ASPIRIN
     Dosage: 10 MG, QD
     Route: 065
  123. ASPIRIN [Suspect]
     Active Substance: ASPIRIN
     Dosage: 10 MG, QD (10 MILLIGRAM DAILY))
     Route: 065
  124. ASPIRIN [Suspect]
     Active Substance: ASPIRIN
     Dosage: 2.5 MG, QD (2.5 MILLIGRAM, BID (2.5 MILLIGRAM, Q12H))
     Route: 065
  125. METOPROLOL [Suspect]
     Active Substance: METOPROLOL
     Indication: Product used for unknown indication
     Route: 065
     Dates: start: 201810
  126. METOPROLOL [Suspect]
     Active Substance: METOPROLOL
     Dosage: 25 MG, TID (75 MILLIGRAM, QD (25 MG, TID, IN THE MORNING, AT NOON AND IN THE EVENING))
     Route: 065
     Dates: start: 201810
  127. METOPROLOL [Suspect]
     Active Substance: METOPROLOL
     Dosage: 25 MG, TID (75 MILLIGRAM, TID (75 MILLIGRAM, QD (25 MG, TID, IN THE MORNING, AT NOON AND IN THE EVEN
     Route: 065
     Dates: start: 201910
  128. METOPROLOL [Suspect]
     Active Substance: METOPROLOL
     Dosage: 100 MG, BID (200 MILLIGRAM, QD (100 MG, BID))
     Route: 065
     Dates: start: 201911
  129. METOPROLOL [Suspect]
     Active Substance: METOPROLOL
     Dosage: 5 MG, QD (5 MG, QD)
     Route: 065
     Dates: start: 20211112
  130. METOPROLOL [Suspect]
     Active Substance: METOPROLOL
     Route: 065
  131. METOPROLOL [Suspect]
     Active Substance: METOPROLOL
     Route: 065
  132. METOPROLOL [Suspect]
     Active Substance: METOPROLOL
     Dosage: 400 MG, QD (100 MG, BID)
     Route: 065
     Dates: start: 201911
  133. METOPROLOL [Suspect]
     Active Substance: METOPROLOL
     Dosage: 225 MG, QD (25 MG, TID, IN THE MORNING, AT NOON AND IN THE EVENING)
     Route: 065
     Dates: start: 201810
  134. METOPROLOL [Suspect]
     Active Substance: METOPROLOL
     Dosage: 225 MG, QD  (25 MG, TID, IN THE MORNING, AT NOON AND IN THE EVENING)
     Route: 065
     Dates: start: 201910
  135. METOPROLOL [Suspect]
     Active Substance: METOPROLOL
     Dosage: 200 MG, QD (DAILY)
     Route: 065
  136. METOPROLOL [Suspect]
     Active Substance: METOPROLOL
     Route: 065
  137. METOPROLOL [Suspect]
     Active Substance: METOPROLOL
     Route: 065
  138. METOPROLOL [Suspect]
     Active Substance: METOPROLOL
     Dosage: 75 MG, QD ((75 MILLIGRAM DAILY; 25 MG,1 IN 8 HR))
     Route: 065
  139. METOPROLOL [Suspect]
     Active Substance: METOPROLOL
     Dosage: 100 MG, QD (100 MILLIGRAM, BID (100 MILLIGRAM, Q12H))
     Route: 065
  140. METOPROLOL [Suspect]
     Active Substance: METOPROLOL
     Dosage: 25 MG, Q8H
     Route: 065
  141. METOPROLOL [Suspect]
     Active Substance: METOPROLOL
     Dosage: 25 MG, QD (25 MILLIGRAM, TID)
     Route: 065
  142. METOPROLOL [Suspect]
     Active Substance: METOPROLOL
     Dosage: 100 MG, QD (100 MILLIGRAM, BID)
     Route: 065
     Dates: start: 201911
  143. SACUBITRIL [Suspect]
     Active Substance: SACUBITRIL
     Indication: Product used for unknown indication
     Dosage: 1 DOSAGE FORM, QD ( (1 DF EVERY 12 HOURS, 2 DOSAGE FORMS DAILY; 24/26 MG))
     Route: 065
  144. SACUBITRIL [Suspect]
     Active Substance: SACUBITRIL
     Dosage: 1 DOSAGE FORM, QD (1 DOSAGE FORM, BID (1 DF EVERY 12 HOURS, 2 DOSAGE FORMS DAILY; 24/26 MG))
     Route: 065
  145. SACUBITRIL [Suspect]
     Active Substance: SACUBITRIL
     Dosage: 1 DOSAGE FORM, QD (1 DOSAGE FORM, QD (1 DOSAGE FORM DAILY; 24/26 MG))
     Route: 065
  146. SACUBITRIL [Suspect]
     Active Substance: SACUBITRIL
     Dosage: 4 DOSAGE FORM, QD (4 DOSAGE FORM, QD (4 DOSAGE FORMS DAILY; 49/51M))
     Route: 065

REACTIONS (18)
  - Cardiogenic shock [Unknown]
  - Low cardiac output syndrome [Unknown]
  - Cardiac failure chronic [Unknown]
  - Pulmonary congestion [Unknown]
  - Pneumonia [Unknown]
  - Dilated cardiomyopathy [Unknown]
  - Cardiomyopathy [Unknown]
  - Cardiac failure [Unknown]
  - Ventricular arrhythmia [Unknown]
  - Atrial thrombosis [Unknown]
  - Atrial fibrillation [Unknown]
  - Chronic kidney disease [Unknown]
  - Sinus tachycardia [Unknown]
  - Urinary tract infection [Unknown]
  - Disease progression [Unknown]
  - Myopathy [Unknown]
  - Dyskinesia [Unknown]
  - Cardiomyopathy [Unknown]

NARRATIVE: CASE EVENT DATE: 20180101
